FAERS Safety Report 9728376 (Version 1)
Quarter: 2013Q4

REPORT INFORMATION
  Report Type: Report from Study
  Country: CA (occurrence: CA)
  Receive Date: 20131204
  Receipt Date: 20131204
  Transmission Date: 20140711
  Serious: Yes (Other)
  Sender: FDA-Public Use
  Company Number: CA-JNJFOC-20131118080

PATIENT
  Age: 25 Year
  Sex: Male
  Weight: 28.12 kg

DRUGS (4)
  1. REMICADE [Suspect]
     Indication: CROHN^S DISEASE
     Route: 042
     Dates: start: 2009
  2. NABILONE [Concomitant]
     Route: 065
  3. MORPHINE [Concomitant]
     Route: 065
  4. TYLENOL 3 [Concomitant]
     Route: 065

REACTIONS (3)
  - Arrhythmia [Unknown]
  - Chest pain [Unknown]
  - Dyspnoea [Unknown]
